FAERS Safety Report 18793140 (Version 1)
Quarter: 2021Q1

REPORT INFORMATION
  Report Type: Spontaneous
  Country: US (occurrence: US)
  Receive Date: 20210127
  Receipt Date: 20210127
  Transmission Date: 20210419
  Serious: No
  Sender: FDA-Public Use
  Company Number: US-ELI_LILLY_AND_COMPANY-US202101007629

PATIENT
  Age: 79 Year
  Sex: Male

DRUGS (1)
  1. BAMLANIVIMAB 700MG [Suspect]
     Active Substance: BAMLANIVIMAB
     Indication: PRODUCT USED FOR UNKNOWN INDICATION
     Dosage: UNK, SINGLE
     Route: 065
     Dates: start: 20201226, end: 20201226

REACTIONS (2)
  - Pyrexia [Unknown]
  - Tremor [Unknown]

NARRATIVE: CASE EVENT DATE: 20201226
